FAERS Safety Report 14759877 (Version 7)
Quarter: 2018Q3

REPORT INFORMATION
  Report Type: Report from Study
  Country: GB (occurrence: GB)
  Receive Date: 20180413
  Receipt Date: 20180914
  Transmission Date: 20181010
  Serious: Yes (Life-Threatening, Hospitalization)
  Sender: FDA-Public Use
  Company Number: GB-GILEAD-2018-0323653

PATIENT
  Age: 54 Year
  Sex: Male
  Weight: 84.5 kg

DRUGS (6)
  1. ATORVASTATIN [Concomitant]
     Active Substance: ATORVASTATIN
     Indication: CARDIOVASCULAR EVENT PROPHYLAXIS
     Dosage: UNK
     Dates: start: 20180216
  2. DOXYCYCLINE. [Concomitant]
     Active Substance: DOXYCYCLINE
     Indication: SYPHILIS
     Route: 048
     Dates: start: 20170915
  3. CLOPIDOGREL [Concomitant]
     Active Substance: CLOPIDOGREL BISULFATE
     Indication: THROMBOSIS PROPHYLAXIS
     Route: 048
     Dates: start: 20180127
  4. TENOFOVIR ALAFENAMIDE [Suspect]
     Active Substance: TENOFOVIR ALAFENAMIDE
     Indication: CHRONIC HEPATITIS B
     Dosage: 25 MG, QD
     Route: 048
     Dates: start: 20140626, end: 20170331
  5. TENOFOVIR ALAFENAMIDE [Suspect]
     Active Substance: TENOFOVIR ALAFENAMIDE
     Dosage: 25 MG, QD
     Route: 048
     Dates: start: 20170401
  6. VOLTAROL 12 HOUR EMULGEL [Concomitant]
     Indication: EPICONDYLITIS
     Route: 061
     Dates: start: 20171021

REACTIONS (1)
  - Cerebrovascular accident [Recovered/Resolved]

NARRATIVE: CASE EVENT DATE: 20180127
